FAERS Safety Report 14406276 (Version 1)
Quarter: 2018Q1

REPORT INFORMATION
  Report Type: Spontaneous
  Country: US (occurrence: US)
  Receive Date: 20180118
  Receipt Date: 20180118
  Transmission Date: 20180509
  Serious: Yes (Hospitalization)
  Sender: FDA-Public Use
  Company Number: US-B. BRAUN MEDICAL INC.-2040285

PATIENT
  Age: 50 Year
  Sex: Female
  Weight: 92.5 kg

DRUGS (8)
  1. 5% DEXTROSE IN WATER FOR INJECTION [Concomitant]
     Route: 042
  2. PHENYLEPHRINE [Concomitant]
     Active Substance: PHENYLEPHRINE\PHENYLEPHRINE HYDROCHLORIDE
  3. ESMOLOL [Concomitant]
     Active Substance: ESMOLOL HYDROCHLORIDE
     Route: 040
  4. OXYGEN. [Concomitant]
     Active Substance: OXYGEN
  5. TUMS [Concomitant]
     Active Substance: CALCIUM CARBONATE
  6. CEFAZOLIN SODIUM. [Suspect]
     Active Substance: CEFAZOLIN SODIUM
     Route: 042
  7. EPHEDRINE. [Concomitant]
     Active Substance: EPHEDRINE
  8. HEPARIN [Concomitant]
     Active Substance: HEPARIN SODIUM

REACTIONS (5)
  - Hypoxia [Recovered/Resolved]
  - Hypotension [Recovered/Resolved]
  - Erythema [Recovered/Resolved]
  - Sinus tachycardia [Recovered/Resolved]
  - Anaphylactic shock [Recovered/Resolved]

NARRATIVE: CASE EVENT DATE: 20170310
